FAERS Safety Report 6137505-1 (Version None)
Quarter: 2009Q1

REPORT INFORMATION
  Report Type: 
  Country: None (occurrence: None)
  Receive Date: 20090326
  Receipt Date: 20090313
  Transmission Date: 20090719
  Serious: Yes (Disabling, Other)
  Sender: FDA-Public Use
  Company Number: 1000005260

PATIENT
  Age: 90 Year
  Sex: Female

DRUGS (7)
  1. MEMANTINE HCL [Suspect]
     Indication: DEMENTIA
     Dosage: 5 MG (5 MG, 1 IN 1 D), ORAL
     Route: 048
     Dates: start: 20090108, end: 20090110
  2. ALLOPURINOL (300 MILLIGRAM, TABLETS) [Concomitant]
  3. TORASEMID(TABLETS) [Concomitant]
  4. ASS (100 MILLIGRAM, TABLETS) [Concomitant]
  5. DOXEPIN HCL [Concomitant]
  6. VASOMOTAL [Concomitant]
  7. PIRACETAM (TABLETS) [Concomitant]

REACTIONS (3)
  - COORDINATION ABNORMAL [None]
  - MOBILITY DECREASED [None]
  - TREMOR [None]
